FAERS Safety Report 9735669 (Version 1)
Quarter: 2013Q4

REPORT INFORMATION
  Report Type: Spontaneous
  Country: US (occurrence: None)
  Receive Date: 20131205
  Receipt Date: 20131205
  Transmission Date: 20140711
  Serious: Yes (Other)
  Sender: FDA-Public Use
  Company Number: None

PATIENT
  Age: 5 Year
  Sex: Male

DRUGS (1)
  1. TEV-TROPIN [Suspect]
     Indication: DWARFISM
     Route: 058
     Dates: start: 20130312

REACTIONS (1)
  - Vomiting [None]
